FAERS Safety Report 5073565-7 (Version None)
Quarter: 2006Q3

REPORT INFORMATION
  Report Type: 
  Country: None (occurrence: None)
  Receive Date: 20060717
  Receipt Date: 20060109
  Transmission Date: 20061208
  Serious: No
  Sender: FDA-Public Use
  Company Number: 2006000087

PATIENT
  Age: 78 Year
  Sex: Female

DRUGS (10)
  1. TARCEVA [Suspect]
     Indication: LUNG NEOPLASM MALIGNANT
     Dosage: 150 MG (QD), ORAL
     Route: 048
     Dates: start: 20051201, end: 20060105
  2. TARCEVA [Suspect]
     Indication: LUNG NEOPLASM MALIGNANT
     Dosage: 150 MG (QD), ORAL
     Route: 048
     Dates: start: 20060108
  3. DEXAMETHASONE TAB [Concomitant]
  4. PERCOCET [Concomitant]
  5. ATIVAN [Concomitant]
  6. REGLAN [Concomitant]
  7. VITAMINS(VITAMINS) [Concomitant]
  8. PREVACID [Concomitant]
  9. SENOKOT [Concomitant]
  10. STOOL SOFTENER (DOCUSATE SODIUM) [Concomitant]

REACTIONS (5)
  - DYSPNOEA [None]
  - EYE PRURITUS [None]
  - HEADACHE [None]
  - INTRAOCULAR PRESSURE INCREASED [None]
  - VISION BLURRED [None]
